FAERS Safety Report 9570971 (Version 2)
Quarter: 2013Q4

REPORT INFORMATION
  Report Type: Spontaneous
  Country: JP (occurrence: JP)
  Receive Date: 20131001
  Receipt Date: 20131001
  Transmission Date: 20140711
  Serious: Yes (Hospitalization)
  Sender: FDA-Public Use
  Company Number: JP-SANOFI-AVENTIS-2013SA086881

PATIENT
  Age: 42 Year
  Sex: Female
  Weight: 50 kg

DRUGS (5)
  1. AMARYL [Suspect]
     Indication: PRODUCT USED FOR UNKNOWN INDICATION
     Route: 048
     Dates: start: 20130827, end: 20130827
  2. GOODMIN [Concomitant]
     Dosage: STRENGTH-0.25
     Route: 048
     Dates: start: 20130827, end: 20130827
  3. GASLON [Concomitant]
     Route: 048
     Dates: start: 20130827, end: 20130827
  4. DEPAKENE [Concomitant]
     Route: 048
     Dates: start: 20130827, end: 20130827
  5. CALONAL [Concomitant]
     Route: 048
     Dates: start: 20130827, end: 20130827

REACTIONS (3)
  - Hypoglycaemia [Recovered/Resolved]
  - Overdose [Recovering/Resolving]
  - Hypokalaemia [Recovered/Resolved]
